FAERS Safety Report 10606450 (Version 3)
Quarter: 2015Q1

REPORT INFORMATION
  Report Type: Spontaneous
  Country: US (occurrence: US)
  Receive Date: 20141125
  Receipt Date: 20150225
  Transmission Date: 20150720
  Serious: Yes (Hospitalization, Other)
  Sender: FDA-Public Use
  Company Number: US-ELI_LILLY_AND_COMPANY-US201411005985

PATIENT
  Sex: Male
  Weight: 146.3 kg

DRUGS (14)
  1. CARDIZEM [Concomitant]
     Active Substance: DILTIAZEM HYDROCHLORIDE
  2. ROCALTROL [Concomitant]
     Active Substance: CALCITRIOL
  3. DEMADEX [Concomitant]
     Active Substance: TORSEMIDE
  4. ALLOPURINOL. [Concomitant]
     Active Substance: ALLOPURINOL
  5. COREG [Concomitant]
     Active Substance: CARVEDILOL
  6. COZAAR [Concomitant]
     Active Substance: LOSARTAN POTASSIUM
  7. ZETIA [Concomitant]
     Active Substance: EZETIMIBE
  8. COUMADIN [Concomitant]
     Active Substance: WARFARIN SODIUM
  9. NEURONTIN [Concomitant]
     Active Substance: GABAPENTIN
  10. PRILOSEC [Concomitant]
     Active Substance: OMEPRAZOLE MAGNESIUM
  11. INSULIN HUMAN [Suspect]
     Active Substance: INSULIN HUMAN
     Indication: TYPE 2 DIABETES MELLITUS
     Dosage: 0.9 ML, OTHER
     Route: 058
     Dates: start: 2006
  12. INSULIN HUMAN [Suspect]
     Active Substance: INSULIN HUMAN
     Dosage: UNK
     Route: 058
     Dates: start: 2006
  13. LOVAZA [Concomitant]
     Active Substance: OMEGA-3-ACID ETHYL ESTERS
  14. CATAPRES                           /00171101/ [Concomitant]
     Active Substance: CLONIDINE

REACTIONS (7)
  - Pancreatitis [Recovering/Resolving]
  - Hearing impaired [Unknown]
  - Wrong technique in drug usage process [Not Recovered/Not Resolved]
  - Follicular thyroid cancer [Recovered/Resolved]
  - Renal failure [Recovering/Resolving]
  - Renal impairment [Recovering/Resolving]
  - Liver disorder [Recovered/Resolved]
